FAERS Safety Report 9490524 (Version 1)
Quarter: 2013Q3

REPORT INFORMATION
  Report Type: Spontaneous
  Country: US (occurrence: None)
  Receive Date: 20130827
  Receipt Date: 20130827
  Transmission Date: 20140515
  Serious: No
  Sender: FDA-Public Use
  Company Number: None

PATIENT
  Age: 8 Year
  Sex: Male
  Weight: 23.59 kg

DRUGS (2)
  1. DESONIDE [Suspect]
     Indication: DERMATITIS
     Dosage: 0.05 % APPLY 2X DAILY APPLY 2X DAILY TO UPPER LIP ON THE SKIN
     Route: 061
     Dates: start: 20130731
  2. 365 BRAND CHEWY MULTIVITAMINS [Concomitant]

REACTIONS (3)
  - Skin hypopigmentation [None]
  - Eczema [None]
  - Wrong patient received medication [None]
